FAERS Safety Report 8169613-8 (Version None)
Quarter: 2012Q1

REPORT INFORMATION
  Report Type: 
  Country: None (occurrence: None)
  Receive Date: 20120228
  Receipt Date: 20120217
  Transmission Date: 20120608
  Serious: No
  Sender: FDA-Public Use
  Company Number: US-JNJFOC-20111208274

PATIENT
  Sex: Female
  Weight: 52.16 kg

DRUGS (23)
  1. FENTANYL-100 [Suspect]
     Indication: ULCER HAEMORRHAGE
     Route: 062
     Dates: start: 20080101, end: 20090101
  2. LUNESTA [Concomitant]
     Indication: SLEEP DISORDER
     Route: 048
     Dates: start: 20010101
  3. CALCIUM [Concomitant]
     Indication: VITAMIN SUPPLEMENTATION
     Route: 048
  4. FENTANYL-100 [Suspect]
     Indication: PAIN
     Route: 062
  5. DURAGESIC-100 [Suspect]
     Indication: ULCER HAEMORRHAGE
     Route: 062
     Dates: start: 20100101
  6. DURAGESIC-100 [Suspect]
     Route: 062
     Dates: start: 20090101
  7. ZYRTEC [Concomitant]
     Indication: MULTIPLE ALLERGIES
     Route: 048
     Dates: start: 20010101
  8. VITAMIN D [Concomitant]
     Indication: VITAMIN SUPPLEMENTATION
     Route: 048
  9. DURAGESIC-100 [Suspect]
     Route: 062
     Dates: start: 20081001, end: 20080101
  10. SYNTHROID [Concomitant]
     Indication: THYROID DISORDER
     Route: 048
  11. DEXILANT [Concomitant]
     Indication: ULCER
     Route: 048
     Dates: start: 20080101
  12. DURAGESIC-100 [Suspect]
     Route: 062
     Dates: start: 20081001, end: 20080101
  13. DURAGESIC-100 [Suspect]
     Indication: PAIN
     Route: 062
     Dates: start: 20080101, end: 20080101
  14. DURAGESIC-100 [Suspect]
     Route: 062
     Dates: start: 20090101
  15. DURAGESIC-100 [Suspect]
     Route: 062
     Dates: start: 20100101
  16. FENTANYL-100 [Suspect]
     Indication: PAIN
     Route: 062
     Dates: start: 20080101, end: 20090101
  17. FENTANYL CITRATE [Suspect]
     Indication: ULCER HAEMORRHAGE
     Route: 062
  18. DURAGESIC-100 [Suspect]
     Route: 062
     Dates: start: 20100101
  19. DURAGESIC-100 [Suspect]
     Route: 062
     Dates: start: 20100101
  20. PATADAY [Concomitant]
     Indication: MULTIPLE ALLERGIES
     Route: 047
     Dates: start: 20010101
  21. DURAGESIC-100 [Suspect]
     Route: 062
     Dates: start: 20080101, end: 20080101
  22. FENTANYL CITRATE [Suspect]
     Indication: PAIN
     Route: 062
  23. FENTANYL-100 [Suspect]
     Indication: ULCER HAEMORRHAGE
     Route: 062

REACTIONS (7)
  - PRODUCT QUALITY ISSUE [None]
  - DRUG PRESCRIBING ERROR [None]
  - DRUG INEFFECTIVE [None]
  - THERAPEUTIC RESPONSE DECREASED [None]
  - VULVOVAGINAL DRYNESS [None]
  - APPLICATION SITE EROSION [None]
  - DERMATITIS ALLERGIC [None]
